FAERS Safety Report 12106553 (Version 4)
Quarter: 2017Q4

REPORT INFORMATION
  Report Type: Spontaneous
  Country: BR (occurrence: BR)
  Receive Date: 20160223
  Receipt Date: 20171213
  Transmission Date: 20180320
  Serious: Yes (Other)
  Sender: FDA-Public Use
  Company Number: BR-AMGEN-BRASP2015135815

PATIENT
  Age: 78 Year
  Sex: Female
  Weight: 70 kg

DRUGS (12)
  1. ENBREL [Suspect]
     Active Substance: ETANERCEPT
     Indication: RHEUMATOID ARTHRITIS
     Dosage: 50 MG, QWK
     Route: 058
     Dates: start: 2015, end: 201508
  2. PURAN [Concomitant]
     Active Substance: LEVOTHYROXINE SODIUM
     Indication: THYROID DISORDER
     Dosage: UNK
     Dates: start: 2000
  3. BUSCOPAN COMPOSTO [Concomitant]
     Active Substance: BUTYLSCOPOLAMINE BROMIDE\METAMIZOLE SODIUM
     Indication: ABDOMINAL PAIN
     Dosage: UNK
     Dates: start: 1997
  4. FLAVENOS [Concomitant]
     Indication: PERIPHERAL VASCULAR DISORDER
     Dosage: UNK
     Dates: start: 201601
  5. SPIRONOLACTONE. [Concomitant]
     Active Substance: SPIRONOLACTONE
     Indication: HYPERTENSION
     Dosage: UNK
     Dates: start: 2000
  6. ENBREL [Suspect]
     Active Substance: ETANERCEPT
     Dosage: UNK
     Route: 065
     Dates: start: 20160211, end: 201602
  7. OMEPRAZOLE. [Concomitant]
     Active Substance: OMEPRAZOLE
     Dosage: UNK
  8. LORAZEPAM. [Concomitant]
     Active Substance: LORAZEPAM
     Indication: INSOMNIA
     Dosage: UNK
     Dates: start: 1994
  9. SIMVASTATIN. [Concomitant]
     Active Substance: SIMVASTATIN
     Indication: BLOOD CHOLESTEROL INCREASED
     Dosage: UNK
     Dates: start: 2000
  10. SELOZOK [Concomitant]
     Active Substance: METOPROLOL SUCCINATE
     Indication: HYPERTENSION
     Dosage: UNK
     Dates: start: 2000
  11. ENBREL [Suspect]
     Active Substance: ETANERCEPT
     Dosage: UNK
     Route: 065
  12. METADOXIL [Concomitant]
     Active Substance: METADOXINE
     Indication: HEPATIC STEATOSIS
     Dosage: UNK
     Dates: start: 201601

REACTIONS (10)
  - Condition aggravated [Recovered/Resolved]
  - Pain [Recovered/Resolved]
  - Speech disorder [Recovered/Resolved]
  - Rheumatic disorder [Recovered/Resolved]
  - Anxiety [Recovered/Resolved]
  - Diabetes mellitus [Not Recovered/Not Resolved]
  - Osteoarthritis [Not Recovered/Not Resolved]
  - Tongue disorder [Recovered/Resolved]
  - Dry mouth [Recovered/Resolved]
  - Rheumatoid arthritis [Recovered/Resolved]

NARRATIVE: CASE EVENT DATE: 2015
